FAERS Safety Report 6385110-4 (Version None)
Quarter: 2009Q4

REPORT INFORMATION
  Report Type: 
  Country: None (occurrence: None)
  Receive Date: 20091002
  Receipt Date: 20090507
  Transmission Date: 20100525
  Serious: Yes (Hospitalization)
  Sender: FDA-Public Use
  Company Number: MX-JNJFOC-20090404615

PATIENT
  Sex: Female
  Weight: 70 kg

DRUGS (2)
  1. REMICADE [Suspect]
     Dosage: 3RD AND LAST DOSE
     Route: 042
     Dates: start: 20090113, end: 20090303
  2. REMICADE [Suspect]
     Indication: PSORIATIC ARTHROPATHY
     Dosage: 1ST INFUSION
     Route: 042
     Dates: start: 20090113, end: 20090303

REACTIONS (1)
  - LYMPH NODE TUBERCULOSIS [None]
